FAERS Safety Report 9553280 (Version 1)
Quarter: 2013Q3

REPORT INFORMATION
  Report Type: Spontaneous
  Country: US (occurrence: None)
  Receive Date: 20130724
  Receipt Date: 20130724
  Transmission Date: 20140515
  Serious: Yes (Other)
  Sender: FDA-Public Use
  Company Number: PHEH2012US019012

PATIENT
  Age: 64 Year
  Sex: Female

DRUGS (1)
  1. GLEEVEC [Suspect]
     Route: 048

REACTIONS (6)
  - Bronchitis [None]
  - Swelling face [None]
  - Dyspnoea [None]
  - Weight increased [None]
  - Eye swelling [None]
  - Fatigue [None]
